FAERS Safety Report 5247692-5 (Version None)
Quarter: 2007Q1

REPORT INFORMATION
  Report Type: 
  Country: None (occurrence: None)
  Receive Date: 20070227
  Receipt Date: 20070215
  Transmission Date: 20070707
  Serious: Yes (Other)
  Sender: FDA-Public Use
  Company Number: HQWYE313913MAR06

PATIENT
  Sex: Male

DRUGS (18)
  1. SIROLIMUS [Suspect]
     Indication: PROPHYLAXIS AGAINST TRANSPLANT REJECTION
     Dosage: 2 MG OD
     Route: 048
  2. SIROLIMUS [Suspect]
     Route: 048
     Dates: start: 20050325
  3. QUININE SULFATE [Concomitant]
     Dosage: 200 MG PRN
     Route: 065
  4. VITAMINS [Concomitant]
     Dosage: 800 IU
  5. CELLCEPT [Concomitant]
     Dosage: 500 MG AM, 750 MG PM
     Route: 065
  6. HYZAAR [Concomitant]
     Dosage: 125 - 50 MG/DAY
     Route: 065
  7. ACETYLSALICYLIC ACID SRT [Concomitant]
     Route: 065
  8. PROSCAR [Concomitant]
     Route: 065
  9. PREDNISONE [Concomitant]
     Route: 065
  10. PRAVACHOL [Concomitant]
     Route: 065
  11. PREVACID [Concomitant]
     Route: 065
  12. DIABETA [Concomitant]
     Route: 065
  13. FLOMAX [Concomitant]
     Route: 065
  14. FOSAMAX [Concomitant]
     Route: 065
  15. CENTRUM FORTE [Concomitant]
     Route: 048
  16. MINOCIN [Concomitant]
     Route: 065
  17. ACCUTANE [Concomitant]
     Dosage: 10 MG OD
  18. CALCIUM [Concomitant]
     Dosage: 500 MG TID

REACTIONS (3)
  - ACTINIC KERATOSIS [None]
  - RECURRENT CANCER [None]
  - SQUAMOUS CELL CARCINOMA [None]
